FAERS Safety Report 7637397-5 (Version None)
Quarter: 2011Q3

REPORT INFORMATION
  Report Type: 
  Country: None (occurrence: None)
  Receive Date: 20110726
  Receipt Date: 20110721
  Transmission Date: 20111222
  Serious: No
  Sender: FDA-Public Use
  Company Number: US-PFIZER INC-2011147963

PATIENT
  Age: 47 Year
  Sex: Female

DRUGS (5)
  1. PLAQUENIL [Suspect]
     Indication: RHEUMATOID ARTHRITIS
  2. NAPROXEN [Concomitant]
     Dosage: 440 MG, 2X/DAY
  3. LIDODERM [Concomitant]
  4. CELEBREX [Suspect]
     Indication: RHEUMATOID ARTHRITIS
  5. PREDNISONE [Suspect]

REACTIONS (6)
  - BACK PAIN [None]
  - WEIGHT INCREASED [None]
  - NAUSEA [None]
  - NECK PAIN [None]
  - FATIGUE [None]
  - DRUG INEFFECTIVE [None]
